FAERS Safety Report 8474678-X (Version None)
Quarter: 2012Q2

REPORT INFORMATION
  Report Type: 
  Country: None (occurrence: None)
  Receive Date: 20120628
  Receipt Date: 20120625
  Transmission Date: 20120825
  Serious: Yes (Hospitalization, Other)
  Sender: FDA-Public Use
  Company Number: US-PFIZER INC-2012152611

PATIENT
  Sex: Female
  Weight: 68.027 kg

DRUGS (3)
  1. SILDENAFIL CITRATE [Suspect]
     Indication: LUNG TRANSPLANT
     Dosage: UNK
  2. REVATIO [Suspect]
     Indication: LUNG TRANSPLANT
     Dosage: UNKNOWN DOSE THREE TABLETS, 3X/DAY
  3. REVATIO [Suspect]
     Dosage: UNKNOWN DOSE TWO TABLETS, 3X/DAY

REACTIONS (6)
  - ACTIVITIES OF DAILY LIVING IMPAIRED [None]
  - ASTHENIA [None]
  - MALAISE [None]
  - FEAR [None]
  - DRUG ADMINISTRATION ERROR [None]
  - DEPRESSED MOOD [None]
